FAERS Safety Report 9734373 (Version 3)
Quarter: 2014Q1

REPORT INFORMATION
  Report Type: Report from Study
  Country: JP (occurrence: JP)
  Receive Date: 20131206
  Receipt Date: 20140114
  Transmission Date: 20141002
  Serious: Yes (Hospitalization)
  Sender: FDA-Public Use
  Company Number: JP-ROCHE-1286809

PATIENT
  Age: 65 Year
  Sex: Male

DRUGS (15)
  1. METHOXY POLYETHYLENE GLYCOL-EPOETIN BETA [Suspect]
     Indication: NEPHROGENIC ANAEMIA
     Route: 058
     Dates: start: 20130415, end: 20130429
  2. METHOXY POLYETHYLENE GLYCOL-EPOETIN BETA [Suspect]
     Indication: NEPHROGENIC ANAEMIA
     Route: 058
     Dates: start: 20130513, end: 20130610
  3. METHOXY POLYETHYLENE GLYCOL-EPOETIN BETA [Suspect]
     Indication: NEPHROGENIC ANAEMIA
     Route: 058
     Dates: start: 20130722, end: 2013
  4. AMLODIPINE [Concomitant]
     Route: 048
     Dates: start: 20130416, end: 20130901
  5. AMLODIPINE [Concomitant]
     Route: 048
     Dates: start: 20130902
  6. AVAPRO [Concomitant]
     Route: 048
     Dates: start: 20130416, end: 20130722
  7. FEBURIC [Concomitant]
     Route: 048
     Dates: start: 20130416, end: 20131007
  8. LIVALO [Concomitant]
     Route: 048
     Dates: start: 20130416, end: 20131007
  9. FERROMIA [Concomitant]
     Route: 048
     Dates: start: 20130722
  10. OLMETEC [Concomitant]
     Route: 048
     Dates: start: 20130723, end: 20130902
  11. MAGNESIUM OXIDE [Concomitant]
     Indication: PROPHYLAXIS
     Route: 048
  12. PURSENNID [Concomitant]
     Dosage: HASTE
     Route: 048
     Dates: start: 20130919
  13. LACTOMIN [Concomitant]
     Dosage: REPORTED AS BIOFERMIN
     Route: 048
     Dates: end: 20130919
  14. VILDAGLIPTIN [Concomitant]
     Dosage: DRUG REPORTED AS EQUA
     Route: 048
     Dates: start: 20130416, end: 20131111
  15. LANSOPRAZOLE [Concomitant]
     Indication: PROPHYLAXIS
     Route: 048
     Dates: start: 20130909

REACTIONS (5)
  - Renal neoplasm [Recovering/Resolving]
  - Gastroenteritis [Recovering/Resolving]
  - Hyperkalaemia [Recovering/Resolving]
  - Blood pressure increased [Recovering/Resolving]
  - Decreased appetite [Recovering/Resolving]
